FAERS Safety Report 5696775-4 (Version None)
Quarter: 2008Q2

REPORT INFORMATION
  Report Type: 
  Country: None (occurrence: None)
  Receive Date: 20080404
  Receipt Date: 20080404
  Transmission Date: 20081010
  Serious: No
  Sender: FDA-Public Use
  Company Number: None

PATIENT

DRUGS (2)
  1. ROSUVASTATIN (RAZE) [Suspect]
     Dosage: 10 MG DAILY
     Dates: start: 20071023, end: 20071030
  2. CRESTOR [Suspect]

REACTIONS (4)
  - HEPATITIS [None]
  - NONSPECIFIC REACTION [None]
  - PHARMACEUTICAL PRODUCT COMPLAINT [None]
  - TREMOR [None]
